FAERS Safety Report 5267250-6 (Version None)
Quarter: 2007Q1

REPORT INFORMATION
  Report Type: 
  Country: None (occurrence: None)
  Receive Date: 20070313
  Receipt Date: 20070302
  Transmission Date: 20070707
  Serious: Yes (Other)
  Sender: FDA-Public Use
  Company Number: 2007309915

PATIENT
  Age: 44 Year
  Sex: Male
  Weight: 70.8 kg

DRUGS (3)
  1. BENADRYL [Suspect]
     Indication: SINUSITIS
     Dosage: ONE TABLET JUST ONCE, ORAL
     Route: 048
     Dates: start: 20070301, end: 20070301
  2. AVELOX [Concomitant]
  3. CRESTOR [Concomitant]

REACTIONS (4)
  - CHEST PAIN [None]
  - DYSPNOEA [None]
  - PRURITUS [None]
  - URTICARIA [None]
